FAERS Safety Report 5713930-5 (Version None)
Quarter: 2008Q2

REPORT INFORMATION
  Report Type: 
  Country: None (occurrence: None)
  Receive Date: 20080422
  Receipt Date: 20080422
  Transmission Date: 20081010
  Serious: Yes (Hospitalization, Other)
  Sender: FDA-Public Use
  Company Number: None

PATIENT
  Age: 38 Year
  Sex: Female
  Weight: 104.3273 kg

DRUGS (1)
  1. CYMBALTA [Suspect]
     Indication: MAJOR DEPRESSION
     Dosage: DAILY ONCE PO
     Route: 048
     Dates: start: 20060104, end: 20080410

REACTIONS (15)
  - DIARRHOEA [None]
  - DRUG WITHDRAWAL SYNDROME [None]
  - ENDOMETRIAL ABLATION [None]
  - HALLUCINATION, AUDITORY [None]
  - HEADACHE [None]
  - HOT FLUSH [None]
  - HYPERHIDROSIS [None]
  - IMPAIRED GASTRIC EMPTYING [None]
  - IRRITABLE BOWEL SYNDROME [None]
  - LOSS OF EMPLOYMENT [None]
  - PARAESTHESIA [None]
  - POST PROCEDURAL COMPLICATION [None]
  - SENSORY DISTURBANCE [None]
  - UTERINE HAEMORRHAGE [None]
  - WEIGHT INCREASED [None]
